FAERS Safety Report 12619184 (Version 1)
Quarter: 2016Q3

REPORT INFORMATION
  Report Type: Spontaneous
  Country: US (occurrence: US)
  Receive Date: 20160803
  Receipt Date: 20160803
  Transmission Date: 20161109
  Serious: Yes (Other)
  Sender: FDA-Public Use
  Company Number: US-SA-2016SA136457

PATIENT
  Age: 44 Year
  Sex: Female

DRUGS (1)
  1. ALLEGRA-D [Suspect]
     Active Substance: FEXOFENADINE\PSEUDOEPHEDRINE
     Indication: MULTIPLE ALLERGIES
     Route: 048

REACTIONS (6)
  - Head discomfort [Unknown]
  - Product physical issue [Unknown]
  - Sinus disorder [Unknown]
  - Rhinorrhoea [Unknown]
  - Incorrect drug administration duration [Unknown]
  - Drug ineffective [Unknown]
